FAERS Safety Report 7656756-8 (Version None)
Quarter: 2011Q3

REPORT INFORMATION
  Report Type: 
  Country: None (occurrence: None)
  Receive Date: 20110804
  Receipt Date: 20110727
  Transmission Date: 20111222
  Serious: Yes (Other)
  Sender: FDA-Public Use
  Company Number: JP-PFIZER INC-2011177486

PATIENT
  Age: 63 Year
  Sex: Female
  Weight: 54 kg

DRUGS (7)
  1. ALOSITOL [Concomitant]
     Indication: HYPERURICAEMIA
     Dosage: UNK
     Route: 048
  2. ATORVASTATIN CALCIUM [Suspect]
     Indication: HYPERCHOLESTEROLAEMIA
     Dosage: 5 MG, 1X/DAY
     Route: 048
     Dates: start: 20110201, end: 20110315
  3. PERSANTIN [Concomitant]
     Indication: GLOMERULONEPHRITIS CHRONIC
     Dosage: UNK
     Route: 048
  4. ALOSENN [Concomitant]
     Indication: CONSTIPATION
     Dosage: UNK
     Route: 048
  5. CALCIUM POLYSTYRENE SULFONATE [Concomitant]
     Indication: GLOMERULONEPHRITIS CHRONIC
     Dosage: JELLY, UNK
  6. SODIUM BICARBONATE [Concomitant]
     Indication: GLOMERULONEPHRITIS CHRONIC
     Dosage: UNK
     Route: 048
  7. OLMESARTAN MEDOXOMIL [Concomitant]
     Indication: HYPERTENSION
     Dosage: UNK
     Route: 048

REACTIONS (1)
  - RENAL IMPAIRMENT [None]
